FAERS Safety Report 7347840-7 (Version None)
Quarter: 2011Q1

REPORT INFORMATION
  Report Type: 
  Country: None (occurrence: None)
  Receive Date: 20110302
  Receipt Date: 20110218
  Transmission Date: 20110831
  Serious: Yes (Other)
  Sender: FDA-Public Use
  Company Number: 1000019016

PATIENT
  Sex: Female

DRUGS (1)
  1. ESCITALOPRAM [Suspect]
     Dosage: 10 MG (10 MG,1 IN 1 D),ORAL
     Route: 048

REACTIONS (2)
  - FALL [None]
  - LOSS OF CONSCIOUSNESS [None]
